FAERS Safety Report 4488003-2 (Version None)
Quarter: 2004Q4

REPORT INFORMATION
  Report Type: 
  Country: None (occurrence: None)
  Receive Date: 20041028
  Receipt Date: 20041021
  Transmission Date: 20050328
  Serious: Yes (Hospitalization)
  Sender: FDA-Public Use
  Company Number: FR-MERCK-0410FRA00078

PATIENT
  Age: 72 Year
  Sex: Male

DRUGS (2)
  1. VIOXX [Suspect]
     Indication: OSTEOARTHRITIS
     Route: 048
     Dates: start: 20030801, end: 20040201
  2. GENERAL ANESTHESIA (UNSPECIFIED) [Concomitant]
     Indication: SHOULDER OPERATION
     Route: 042
     Dates: start: 20040202, end: 20040202

REACTIONS (1)
  - ATRIAL FIBRILLATION [None]
